FAERS Safety Report 18901391 (Version 1)
Quarter: 2021Q1

REPORT INFORMATION
  Report Type: Report from Study
  Country: US (occurrence: US)
  Receive Date: 20210216
  Receipt Date: 20210216
  Transmission Date: 20210420
  Serious: Yes (Life-Threatening, Hospitalization, Other)
  Sender: FDA-Public Use
  Company Number: US-JNJFOC-20210223027

PATIENT
  Age: 56 Year
  Sex: Female

DRUGS (3)
  1. SPRAVATO [Suspect]
     Active Substance: ESKETAMINE
     Indication: DEPRESSION
     Dates: start: 20210105, end: 20210105
  2. SPRAVATO [Suspect]
     Active Substance: ESKETAMINE
     Dates: start: 20210119, end: 20210119
  3. SPRAVATO [Suspect]
     Active Substance: ESKETAMINE
     Dates: start: 20210209, end: 20210209

REACTIONS (2)
  - Anaesthetic complication pulmonary [Recovered/Resolved]
  - Breast cancer [Unknown]

NARRATIVE: CASE EVENT DATE: 20210122
